FAERS Safety Report 23889598 (Version 1)
Quarter: 2024Q2

REPORT INFORMATION
  Report Type: Spontaneous
  Country: US (occurrence: None)
  Receive Date: 20240523
  Receipt Date: 20240523
  Transmission Date: 20240716
  Serious: No
  Sender: FDA-Public Use
  Company Number: None

PATIENT

DRUGS (1)
  1. EPINEPHRINE [Suspect]
     Active Substance: EPINEPHRINE
     Dosage: OTHER STRENGTH : 1 MG (0.1 MG/ML;?

REACTIONS (2)
  - Wrong product stored [None]
  - Product use in unapproved indication [None]
